FAERS Safety Report 21342513 (Version 2)
Quarter: 2022Q4

REPORT INFORMATION
  Report Type: Spontaneous
  Country: CH (occurrence: CH)
  Receive Date: 20220916
  Receipt Date: 20221216
  Transmission Date: 20230113
  Serious: Yes (Other)
  Sender: FDA-Public Use
  Company Number: CH-JNJFOC-20211148938

PATIENT
  Age: 15 Year
  Sex: Male

DRUGS (3)
  1. STELARA [Suspect]
     Active Substance: USTEKINUMAB
     Indication: Colitis ulcerative
     Route: 040
     Dates: start: 202110
  2. STELARA [Suspect]
     Active Substance: USTEKINUMAB
     Route: 040
  3. STELARA [Suspect]
     Active Substance: USTEKINUMAB
     Route: 040

REACTIONS (3)
  - Cholangitis [Unknown]
  - Off label use [Unknown]
  - Product use issue [Unknown]

NARRATIVE: CASE EVENT DATE: 20211001
